FAERS Safety Report 16915931 (Version 1)
Quarter: 2019Q4

REPORT INFORMATION
  Report Type: Spontaneous
  Country: GB (occurrence: GB)
  Receive Date: 20191014
  Receipt Date: 20191014
  Transmission Date: 20200122
  Serious: Yes (Disabling)
  Sender: FDA-Public Use
  Company Number: GB-MYLANLABS-2019M1096425

PATIENT
  Age: 91 Year
  Sex: Female
  Weight: 55 kg

DRUGS (11)
  1. CASSIA SENNA [Concomitant]
     Active Substance: HERBALS\SENNOSIDES
     Dosage: 2 DOSAGE FORM, QD (AT NIGHT.)
     Dates: start: 20190207
  2. MEMANTINE. [Suspect]
     Active Substance: MEMANTINE
     Indication: PRODUCT USED FOR UNKNOWN INDICATION
     Dosage: 5 MILLIGRAM, QD (INITIALLY.)
     Dates: start: 20190613
  3. BENDROFLUMETHIAZIDE [Concomitant]
     Active Substance: BENDROFLUMETHIAZIDE
     Dosage: 1 DOSAGE FORM, QD (EACH MORNING.)
     Dates: start: 20190207, end: 20190510
  4. LORAZEPAM. [Concomitant]
     Active Substance: LORAZEPAM
     Dosage: UNK UNK, PRN(TAKE HALF UP TO TWICE DAILY.)
     Dates: start: 20190613, end: 20190620
  5. ADCAL                              /07357001/ [Concomitant]
     Active Substance: CALCIUM CARBONATE
     Dosage: 4 DOSAGE FORM, QD
     Dates: start: 20190207
  6. LACTULOSE. [Concomitant]
     Active Substance: LACTULOSE
     Dosage: 20 MILLILITER, QD
     Dates: start: 20190207
  7. PARACETAMOL [Concomitant]
     Active Substance: ACETAMINOPHEN
     Dosage: UNK UNK, PRN (TAKE ONE OR TWO FOUR TIMES A DAY.)
     Dates: start: 20190529
  8. GALANTAMINE. [Concomitant]
     Active Substance: GALANTAMINE
     Dosage: 1 DOSAGE FORM, QD
     Dates: start: 20190411, end: 20190613
  9. SERTRALINE [Concomitant]
     Active Substance: SERTRALINE HYDROCHLORIDE
     Dosage: 1 DOSAGE FORM, QD
     Dates: start: 20190207
  10. LUVENTA [Concomitant]
     Dosage: 1 DOSAGE FORM, QD
     Dates: start: 20190207, end: 20190612
  11. ZEROBASE                           /00103901/ [Concomitant]
     Indication: DRY SKIN
     Dosage: UNK UNK, PRN (APPLY AS OFTEN AS NEEDED- USE PLENTY.)
     Route: 061
     Dates: start: 20190508

REACTIONS (4)
  - Dyskinesia [Unknown]
  - Somnolence [Unknown]
  - Yawning [Unknown]
  - Balance disorder [Unknown]
